FAERS Safety Report 8437098-X (Version None)
Quarter: 2012Q2

REPORT INFORMATION
  Report Type: 
  Country: None (occurrence: None)
  Receive Date: 20120614
  Receipt Date: 20120507
  Transmission Date: 20120825
  Serious: No
  Sender: FDA-Public Use
  Company Number: US-AMGEN-USASP2012017253

PATIENT
  Age: 68 Year
  Sex: Female
  Weight: 56.508 kg

DRUGS (13)
  1. DAPSONE [Concomitant]
     Dosage: 100 MG, QD
     Route: 048
  2. NOVOLOG [Concomitant]
  3. IMMUNOSUPPRESSANTS [Concomitant]
  4. PROGRAF [Concomitant]
     Dosage: 1 MG, BID
     Route: 048
     Dates: start: 20040101
  5. NEURONTIN [Concomitant]
     Indication: NEUROPATHY PERIPHERAL
     Dosage: 300 MG, UNK
     Route: 048
  6. IMURAN [Concomitant]
     Dosage: 50 MG, QD
     Route: 048
     Dates: start: 20040101
  7. ZOCOR [Concomitant]
     Indication: BLOOD CHOLESTEROL
     Dosage: 20 MG, QD
     Route: 048
  8. PREDNISONE TAB [Concomitant]
     Dosage: 5 MG, QD
     Route: 048
     Dates: start: 20040101
  9. PROLIA [Suspect]
     Indication: SENILE OSTEOPOROSIS
     Dosage: 60 MG, Q6MO
     Route: 058
     Dates: start: 20111215, end: 20111215
  10. NYSTATIN [Concomitant]
     Indication: ANTIFUNGAL TREATMENT
  11. CALTRATE + D                       /00944201/ [Concomitant]
     Indication: OSTEOPOROSIS
     Dosage: 600 MG, BID
     Route: 048
  12. PREVACID [Concomitant]
     Indication: GASTROOESOPHAGEAL REFLUX DISEASE
     Dosage: 30 MG, BID
  13. CORTICOSTEROIDS [Concomitant]

REACTIONS (4)
  - TREMOR [None]
  - PRURITUS [None]
  - RASH ERYTHEMATOUS [None]
  - DRUG ERUPTION [None]
